FAERS Safety Report 20908177 (Version 2)
Quarter: 2022Q2

REPORT INFORMATION
  Report Type: Spontaneous
  Country: JP (occurrence: JP)
  Receive Date: 20220602
  Receipt Date: 20220620
  Transmission Date: 20220720
  Serious: Yes (Other)
  Sender: FDA-Public Use
  Company Number: JP-BEH-2022144110

PATIENT
  Sex: Male
  Weight: 48.7 kg

DRUGS (1)
  1. PRIVIGEN [Suspect]
     Active Substance: HUMAN IMMUNOGLOBULIN G
     Indication: Hypogammaglobulinaemia
     Dosage: 10 GRAM, QD
     Route: 042
     Dates: start: 20220408, end: 20220408

REACTIONS (4)
  - Acute lymphocytic leukaemia [Unknown]
  - Blood beta-D-glucan increased [Recovered/Resolved]
  - False positive investigation result [Recovered/Resolved]
  - Fungal infection [Unknown]

NARRATIVE: CASE EVENT DATE: 20220408
